FAERS Safety Report 24051640 (Version 3)
Quarter: 2024Q3

REPORT INFORMATION
  Report Type: Spontaneous
  Country: US (occurrence: US)
  Receive Date: 20240704
  Receipt Date: 20240912
  Transmission Date: 20241017
  Serious: No
  Sender: DAIICHI
  Company Number: US-DSJP-DSU-2024-130002

PATIENT
  Age: 61 Year
  Sex: Female
  Weight: 71.67 kg

DRUGS (5)
  1. ENHERTU [Suspect]
     Active Substance: FAM-TRASTUZUMAB DERUXTECAN-NXKI
     Indication: Breast cancer
     Dosage: 380.6 MG, ONCE EVERY 3 WK
     Route: 042
     Dates: start: 20240627, end: 20240627
  2. DEX [DEXPANTHENOL] [Concomitant]
     Indication: Product used for unknown indication
     Dosage: UNK UNK, ONCE EVERY 3 WK
     Route: 042
     Dates: start: 20240427, end: 20240627
  3. ALOXI [Concomitant]
     Active Substance: PALONOSETRON HYDROCHLORIDE
     Indication: Product used for unknown indication
     Dosage: UNK UNK, ONCE EVERY 3 WK (PUSH)
     Route: 050
     Dates: start: 20240427, end: 20240627
  4. CINVANTI [Concomitant]
     Active Substance: APREPITANT
     Indication: Product used for unknown indication
     Dosage: UNK, ONCE EVERY 3 WK
     Route: 042
     Dates: start: 20240427, end: 20240627
  5. XGEVA [Concomitant]
     Active Substance: DENOSUMAB
     Indication: Metastases to bone
     Dosage: UNK UNK, ONCE EVERY 4 WK
     Route: 058
     Dates: start: 20240427, end: 20240627

REACTIONS (2)
  - Device use error [Recovered/Resolved]
  - No adverse event [Unknown]

NARRATIVE: CASE EVENT DATE: 20240627
